FAERS Safety Report 25621743 (Version 1)
Quarter: 2025Q3

REPORT INFORMATION
  Report Type: Spontaneous
  Country: CN (occurrence: CN)
  Receive Date: 20250730
  Receipt Date: 20250730
  Transmission Date: 20251021
  Serious: Yes (Other)
  Sender: BAXTER
  Company Number: None

PATIENT
  Age: 66 Year
  Sex: Male
  Weight: 58.5 kg

DRUGS (6)
  1. CYCLOPHOSPHAMIDE [Suspect]
     Active Substance: CYCLOPHOSPHAMIDE
     Indication: Diffuse large B-cell lymphoma
     Dosage: 1.200000 G, QD, WITH 0.9% SODIUM CHLORIDE (GROUP SOLUTION)
     Route: 013
     Dates: start: 20250630, end: 20250630
  2. SODIUM CHLORIDE [Suspect]
     Active Substance: SODIUM CHLORIDE
     Dosage: 60 ML, QD (0.9%), ARTERIAL INFUSION WITH CYCLOPHOSPHAMIDE 1.2 G (GROUP SOLUTION)
     Route: 013
     Dates: start: 20250630, end: 20250630
  3. SODIUM CHLORIDE [Suspect]
     Active Substance: SODIUM CHLORIDE
     Dosage: 60 ML, QD (0.9%), ARTERIAL INFUSION WITH VINCRISTINE SULFATE 1.2 MG (GROUP SOLUTION)
     Route: 013
     Dates: start: 20250630, end: 20250630
  4. SODIUM CHLORIDE [Suspect]
     Active Substance: SODIUM CHLORIDE
     Dosage: 60 ML, QD (0.9%), ARTERIAL INFUSION WITH DOXORUBICIN HYDROCHLORIDE 70MG (GROUP SOLUTION)
     Route: 013
     Dates: start: 20250630, end: 20250630
  5. DOXORUBICIN HYDROCHLORIDE [Suspect]
     Active Substance: DOXORUBICIN HYDROCHLORIDE
     Indication: Diffuse large B-cell lymphoma
     Dosage: 70.00000 MG, QD (ONCE DAILY), WITH 0.9% SODIUM CHLORIDE (GROUP SOLUTION)
     Route: 013
     Dates: start: 20250630, end: 20250630
  6. VINCRISTINE SULFATE [Suspect]
     Active Substance: VINCRISTINE SULFATE
     Indication: Diffuse large B-cell lymphoma
     Dosage: 1.200000 MG, QD, WITH 0.9% SODIUM CHLORIDE (GROUP SOLUTION)
     Route: 013
     Dates: start: 20250630, end: 20250630

REACTIONS (1)
  - White blood cell count decreased [Recovering/Resolving]

NARRATIVE: CASE EVENT DATE: 20250718
